FAERS Safety Report 4593468-1 (Version None)
Quarter: 2005Q1

REPORT INFORMATION
  Report Type: 
  Country: None (occurrence: None)
  Receive Date: 20050224
  Receipt Date: 20040712
  Transmission Date: 20050727
  Serious: No
  Sender: FDA-Public Use
  Company Number: US-BRISTOL-MYERS SQUIBB COMPANY-12645198

PATIENT
  Age: 79 Year
  Sex: Female
  Weight: 53 kg

DRUGS (1)
  1. EXCEDRIN (MIGRAINE) [Suspect]
     Indication: PAIN IN EXTREMITY
     Dates: start: 19630101

REACTIONS (1)
  - ABDOMINAL PAIN UPPER [None]
